FAERS Safety Report 18260581 (Version 4)
Quarter: 2021Q1

REPORT INFORMATION
  Report Type: Spontaneous
  Country: US (occurrence: US)
  Receive Date: 20200914
  Receipt Date: 20210102
  Transmission Date: 20210419
  Serious: No
  Sender: FDA-Public Use
  Company Number: US-LUPIN PHARMACEUTICALS INC.-2020-05541

PATIENT
  Age: 61 Year
  Sex: Female
  Weight: 139.68 kg

DRUGS (3)
  1. ESZOPICLONE TABLETS, 2 MG [Suspect]
     Active Substance: ESZOPICLONE
     Dosage: 2 MILLIGRAM, QD (AT NIGHT)
     Route: 048
     Dates: start: 20200816
  2. ESZOPICLONE TABLETS, 2 MG [Suspect]
     Active Substance: ESZOPICLONE
     Indication: INSOMNIA
     Dosage: UNK UNK, QD (QUITE A LONG TIME)
     Route: 048
  3. LOPRESSOR [Concomitant]
     Active Substance: METOPROLOL TARTRATE
     Indication: BLOOD PRESSURE MEASUREMENT
     Route: 065

REACTIONS (4)
  - Drug ineffective [Unknown]
  - Palpitations [Not Recovered/Not Resolved]
  - Product quality issue [Unknown]
  - Initial insomnia [Not Recovered/Not Resolved]

NARRATIVE: CASE EVENT DATE: 202008
